FAERS Safety Report 7749625-6 (Version None)
Quarter: 2011Q3

REPORT INFORMATION
  Report Type: 
  Country: None (occurrence: None)
  Receive Date: 20110914
  Receipt Date: 20110902
  Transmission Date: 20111222
  Serious: Yes (Hospitalization)
  Sender: FDA-Public Use
  Company Number: FR-UCBSA-040613

PATIENT
  Sex: Male

DRUGS (2)
  1. VIMPAT [Suspect]
     Route: 048
  2. VIMPAT [Suspect]
     Route: 048

REACTIONS (3)
  - WEIGHT DECREASED [None]
  - VOMITING [None]
  - CONVULSION [None]
